FAERS Safety Report 4403738-5 (Version None)
Quarter: 2004Q3

REPORT INFORMATION
  Report Type: 
  Country: None (occurrence: None)
  Receive Date: 20040719
  Receipt Date: 20040701
  Transmission Date: 20050211
  Serious: Yes (Other)
  Sender: FDA-Public Use
  Company Number: MC200400059

PATIENT
  Age: 52 Year
  Sex: Female

DRUGS (12)
  1. ANGIOMAX [Suspect]
     Indication: ANGIOPLASTY
     Dosage: SEE IMAGE
     Route: 040
     Dates: start: 20040503, end: 20040503
  2. ANGIOMAX [Suspect]
     Indication: ANTICOAGULANT THERAPY
     Dosage: SEE IMAGE
     Route: 040
     Dates: start: 20040503, end: 20040503
  3. ANGIOMAX [Suspect]
     Indication: ANGIOPLASTY
     Dosage: SEE IMAGE
     Route: 040
     Dates: start: 20040503, end: 20040503
  4. ANGIOMAX [Suspect]
     Indication: ANTICOAGULANT THERAPY
     Dosage: SEE IMAGE
     Route: 040
     Dates: start: 20040503, end: 20040503
  5. CONTRAST MEDIA [Suspect]
     Dates: start: 20040503
  6. AMIODARONE (AMIDARONE) [Concomitant]
  7. LIPITOR [Concomitant]
  8. SYNTHROID [Concomitant]
  9. GLIPIZIDE [Concomitant]
  10. ACETYLSALICYLIC ACID SRT [Concomitant]
  11. WARFARIN (WARFARIN) [Concomitant]
  12. METOPROLOL (METOPROLOL) [Concomitant]

REACTIONS (5)
  - ARTERIOSPASM CORONARY [None]
  - CONTRAST MEDIA REACTION [None]
  - HYPERSENSITIVITY [None]
  - HYPOTENSION [None]
  - VASOSPASM [None]
